FAERS Safety Report 25061199 (Version 2)
Quarter: 2025Q2

REPORT INFORMATION
  Report Type: Report from Study
  Country: FR (occurrence: FR)
  Receive Date: 20250310
  Receipt Date: 20250409
  Transmission Date: 20250717
  Serious: Yes (Death, Other)
  Sender: TAKEDA
  Company Number: FR-TAKEDA-2025TUS024414

PATIENT
  Sex: Male

DRUGS (1)
  1. FRUQUINTINIB [Suspect]
     Active Substance: FRUQUINTINIB
     Indication: Colorectal cancer metastatic

REACTIONS (2)
  - Metastases to peritoneum [Fatal]
  - Intestinal obstruction [Fatal]
